FAERS Safety Report 4996465-7 (Version None)
Quarter: 2006Q2

REPORT INFORMATION
  Report Type: 
  Country: None (occurrence: None)
  Receive Date: 20060505
  Receipt Date: 20060427
  Transmission Date: 20061013
  Serious: Yes (Death, Hospitalization)
  Sender: FDA-Public Use
  Company Number: TCI2006A05106

PATIENT
  Age: 47 Year
  Sex: Female

DRUGS (6)
  1. LANSOPRAZOLE [Suspect]
     Indication: GASTRIC ULCER
     Dosage: 30 + 60 MG (30 MG, 1 IN 1 D) PER ORAL - SEE IMAGE
     Route: 048
     Dates: start: 20051128, end: 20051204
  2. LANSOPRAZOLE [Suspect]
     Indication: HELICOBACTER INFECTION
     Dosage: 30 + 60 MG (30 MG, 1 IN 1 D) PER ORAL - SEE IMAGE
     Route: 048
     Dates: start: 20051128, end: 20051204
  3. LANSOPRAZOLE [Suspect]
     Indication: GASTRIC ULCER
     Dosage: 30 + 60 MG (30 MG, 1 IN 1 D) PER ORAL - SEE IMAGE
     Route: 048
     Dates: start: 20051205, end: 20051212
  4. LANSOPRAZOLE [Suspect]
     Indication: HELICOBACTER INFECTION
     Dosage: 30 + 60 MG (30 MG, 1 IN 1 D) PER ORAL - SEE IMAGE
     Route: 048
     Dates: start: 20051205, end: 20051212
  5. CLARITHROMYCIN [Suspect]
     Indication: HELICOBACTER INFECTION
     Dosage: 800 MG (400 MG, 2 IN 1 D) PER ORAL
     Route: 048
     Dates: start: 20051205, end: 20051212
  6. AMOXICILLIN TRIHYDRATE [Suspect]
     Indication: HELICOBACTER INFECTION
     Dosage: 1500 MG (750 MG, 2 IN 1 D) PER ORAL
     Route: 048
     Dates: start: 20051205, end: 20051212

REACTIONS (1)
  - PANCREATIC CARCINOMA [None]
